FAERS Safety Report 12195027 (Version 1)
Quarter: 2016Q1

REPORT INFORMATION
  Report Type: Spontaneous
  Country: US (occurrence: None)
  Receive Date: 20160318
  Receipt Date: 20160318
  Transmission Date: 20160526
  Serious: Yes (Other)
  Sender: FDA-Public Use
  Company Number: None

PATIENT
  Age: 31 Year
  Sex: Female
  Weight: 60 kg

DRUGS (1)
  1. INJECTAFER [Suspect]
     Active Substance: FERRIC CARBOXYMALTOSE
     Indication: IRON DEFICIENCY ANAEMIA
     Dates: start: 20160311, end: 20160311

REACTIONS (4)
  - Nausea [None]
  - Hyperhidrosis [None]
  - Myalgia [None]
  - Back pain [None]

NARRATIVE: CASE EVENT DATE: 20160311
